FAERS Safety Report 16403264 (Version 2)
Quarter: 2020Q1

REPORT INFORMATION
  Report Type: Spontaneous
  Country: PT (occurrence: PT)
  Receive Date: 20190607
  Receipt Date: 20200215
  Transmission Date: 20200409
  Serious: Yes (Hospitalization)
  Sender: FDA-Public Use
  Company Number: PT-ACCORD-131828

PATIENT
  Age: 86 Year
  Sex: Female
  Weight: 58 kg

DRUGS (11)
  1. ALENDRONATE SODIUM/ALENDRONIC ACID [Concomitant]
     Active Substance: ALENDRONATE SODIUM
  2. AMIODARONE [Concomitant]
     Active Substance: AMIODARONE
  3. PANTOPRAZOLE [Concomitant]
     Active Substance: PANTOPRAZOLE
  4. GEMCITABINE ACCORD [Suspect]
     Active Substance: GEMCITABINE HYDROCHLORIDE
     Indication: LUNG NEOPLASM MALIGNANT
     Dosage: 1400 MG IN D1 AND D8 IN THE 21 DAY CYCLE
     Route: 042
     Dates: start: 20190402, end: 20190415
  5. PARACETAMOL [Concomitant]
     Active Substance: ACETAMINOPHEN
  6. FUROSEMIDE. [Concomitant]
     Active Substance: FUROSEMIDE
  7. BETAHISTINE [Concomitant]
     Active Substance: BETAHISTINE
  8. CARBOPLATIN HIKMA [Suspect]
     Active Substance: CARBOPLATIN
     Indication: LUNG NEOPLASM MALIGNANT
     Dosage: 240 MG IN D1 OF THE 21-DAY CYCLE
     Route: 042
     Dates: start: 20190402, end: 20190415
  9. CANDESARTAN/HYDROCHLOROTHIAZIDE [Concomitant]
     Active Substance: CANDESARTAN CILEXETIL\HYDROCHLOROTHIAZIDE
  10. CLOPIDOGREL [Concomitant]
     Active Substance: CLOPIDOGREL BISULFATE
  11. LORAZEPAM. [Concomitant]
     Active Substance: LORAZEPAM

REACTIONS (3)
  - Normocytic anaemia [Unknown]
  - Haemorrhagic stroke [Unknown]
  - Thrombocytopenia [Unknown]

NARRATIVE: CASE EVENT DATE: 20190415
